FAERS Safety Report 8474282-3 (Version None)
Quarter: 2012Q2

REPORT INFORMATION
  Report Type: 
  Country: None (occurrence: None)
  Receive Date: 20120628
  Receipt Date: 20120620
  Transmission Date: 20120825
  Serious: Yes (Other)
  Sender: FDA-Public Use
  Company Number: US-US-EMD SERONO, INC.-7140340

PATIENT
  Sex: Female
  Weight: 93 kg

DRUGS (5)
  1. ATENOLOL [Concomitant]
     Indication: PRODUCT USED FOR UNKNOWN INDICATION
     Route: 048
  2. SELENIUM [Concomitant]
  3. LEVOTHYROXINE [Concomitant]
     Indication: THYROID DISORDER
     Dates: start: 20060101
  4. UNSPECIFIED CHOLESTEROL MEDICINE [Concomitant]
  5. REBIF [Suspect]
     Indication: MULTIPLE SCLEROSIS
     Route: 058
     Dates: start: 20050829, end: 20111209

REACTIONS (2)
  - LIVER FUNCTION TEST ABNORMAL [None]
  - AUTOIMMUNE THYROIDITIS [None]
